FAERS Safety Report 5138655-9 (Version None)
Quarter: 2006Q4

REPORT INFORMATION
  Report Type: 
  Country: None (occurrence: None)
  Receive Date: 20061026
  Receipt Date: 20061026
  Transmission Date: 20070319
  Serious: Yes (Hospitalization)
  Sender: FDA-Public Use
  Company Number: None

PATIENT
  Age: 55 Year
  Sex: Male
  Weight: 130 kg

DRUGS (11)
  1. DEPAKOTE ER [Suspect]
     Indication: MANIA
     Dosage: 3000 MG AT BEDTIME PO
     Route: 048
     Dates: start: 20060101
  2. PREDNISONE TAB [Concomitant]
  3. TRILEPTAL [Concomitant]
  4. DEPAKOTE ER [Concomitant]
  5. VESICARE [Concomitant]
  6. SEROQUEL [Concomitant]
  7. ATENOLOL [Concomitant]
  8. TRICOR [Concomitant]
  9. ASPIRIN [Concomitant]
  10. MULTI-VITAMIN [Concomitant]
  11. ABILIFY [Concomitant]

REACTIONS (1)
  - PANCREATITIS ACUTE [None]
